FAERS Safety Report 19210139 (Version 1)
Quarter: 2021Q2

REPORT INFORMATION
  Report Type: Spontaneous
  Country: US (occurrence: US)
  Receive Date: 20210504
  Receipt Date: 20210504
  Transmission Date: 20210717
  Serious: Yes (Other)
  Sender: FDA-Public Use
  Company Number: US-SUN PHARMACEUTICAL INDUSTRIES LTD-2021R1-292804

PATIENT
  Age: 35 Year
  Sex: Female

DRUGS (5)
  1. ETHINYL ESTRADIOL [Concomitant]
     Active Substance: ETHINYL ESTRADIOL
     Indication: ORAL CONTRACEPTION
     Dosage: 0.01 MILLIGRAM, UNK
     Route: 048
  2. TRETINOIN. [Suspect]
     Active Substance: TRETINOIN
     Indication: ACNE
     Dosage: UNK
     Route: 065
  3. DOXYCYCLINE. [Suspect]
     Active Substance: DOXYCYCLINE
     Indication: ACNE
     Dosage: 100 MILLIGRAM, DAILY
     Route: 065
  4. LEVONORGESTREL/ETHINYL ESTRADIOL [Concomitant]
     Active Substance: ETHINYL ESTRADIOL\LEVONORGESTREL
     Indication: ORAL CONTRACEPTION
     Dosage: 0.15 MG/0.03 MG
     Route: 048
  5. SPIRONOLACTONE. [Suspect]
     Active Substance: SPIRONOLACTONE
     Indication: ACNE
     Dosage: 100 MILLIGRAM, DAILY
     Route: 065

REACTIONS (1)
  - Heavy menstrual bleeding [Unknown]
